FAERS Safety Report 8163567-6 (Version None)
Quarter: 2012Q1

REPORT INFORMATION
  Report Type: 
  Country: None (occurrence: None)
  Receive Date: 20120224
  Receipt Date: 20120216
  Transmission Date: 20120608
  Serious: Yes (Other)
  Sender: FDA-Public Use
  Company Number: US-JNJFOC-20120208666

PATIENT
  Sex: Male
  Weight: 142.88 kg

DRUGS (8)
  1. LIPITOR [Concomitant]
     Indication: BLOOD CHOLESTEROL INCREASED
     Route: 048
     Dates: start: 20100101
  2. AMLODIPINE [Concomitant]
     Dates: start: 20060101
  3. ZYRTEC [Concomitant]
     Dates: start: 20090301
  4. XARELTO [Suspect]
     Indication: THROMBOSIS PROPHYLAXIS
     Route: 048
     Dates: start: 20120210, end: 20120212
  5. ALL OTHER THERAPEUTIC DRUG [Concomitant]
     Indication: HYPERTENSION
     Dates: start: 20060101
  6. COREG [Concomitant]
     Dates: start: 20060101
  7. ZYRTEC [Concomitant]
     Indication: SEASONAL ALLERGY
     Dates: start: 20090301
  8. SPIRONOLACTONE [Concomitant]
     Indication: HYPERTENSION
     Dates: start: 20060101

REACTIONS (1)
  - VOMITING [None]
